APPROVED DRUG PRODUCT: TAVIST-1
Active Ingredient: CLEMASTINE FUMARATE
Strength: 1.34MG
Dosage Form/Route: TABLET;ORAL
Application: N017661 | Product #003
Applicant: NOVARTIS PHARMACEUTICALS CORP
Approved: Aug 21, 1992 | RLD: No | RS: No | Type: DISCN